FAERS Safety Report 4557921-9 (Version None)
Quarter: 2005Q1

REPORT INFORMATION
  Report Type: 
  Country: None (occurrence: None)
  Receive Date: 20050121
  Receipt Date: 20040129
  Transmission Date: 20050727
  Serious: Yes (Other)
  Sender: FDA-Public Use
  Company Number: US-BRISTOL-MYERS SQUIBB COMPANY-12492310

PATIENT
  Age: 33 Year
  Sex: Male

DRUGS (7)
  1. SERZONE [Suspect]
     Route: 048
  2. LOTREL [Concomitant]
  3. PREVACID [Concomitant]
  4. ZOLOFT [Concomitant]
  5. VALIUM [Concomitant]
  6. DILANTIN [Concomitant]
  7. KLONOPIN [Concomitant]
     Indication: GENERALISED ANXIETY DISORDER

REACTIONS (2)
  - CONVULSION [None]
  - GAMMA-GLUTAMYLTRANSFERASE INCREASED [None]
